FAERS Safety Report 5211532-0 (Version None)
Quarter: 2007Q1

REPORT INFORMATION
  Report Type: 
  Country: None (occurrence: None)
  Receive Date: 20070117
  Receipt Date: 20070108
  Transmission Date: 20070707
  Serious: Yes (Life-Threatening, Hospitalization, Other)
  Sender: FDA-Public Use
  Company Number: DE-ABBOTT-07P-062-0355216-00

PATIENT
  Sex: Female
  Weight: 57 kg

DRUGS (15)
  1. KLACID [Suspect]
     Indication: MYCOBACTERIUM ABSCESSUS INFECTION
     Route: 048
     Dates: start: 20060401, end: 20060501
  2. KLACID [Suspect]
     Route: 048
     Dates: start: 20060815, end: 20061009
  3. PRIMAXIN [Suspect]
     Indication: MYCOBACTERIUM ABSCESSUS INFECTION
     Route: 042
     Dates: start: 20060828, end: 20061009
  4. AMIKACIN [Suspect]
     Indication: MYCOBACTERIUM ABSCESSUS INFECTION
     Route: 042
     Dates: start: 20060815, end: 20061009
  5. CEFOXITIN [Suspect]
     Indication: INFECTION
     Dates: start: 20060815, end: 20060827
  6. PREDNISONE TAB [Concomitant]
     Indication: DRUG USE FOR UNKNOWN INDICATION
     Route: 048
  7. ESCHERICHIA COLI [Concomitant]
     Indication: DRUG USE FOR UNKNOWN INDICATION
     Route: 048
  8. SACCHAROMYCES BOULARDII [Concomitant]
     Indication: DIARRHOEA
     Route: 048
  9. LEKOVIT CA [Concomitant]
     Indication: OSTEOPOROSIS PROPHYLAXIS
     Route: 048
  10. VIANI FORTE [Concomitant]
     Indication: DRUG USE FOR UNKNOWN INDICATION
     Route: 055
  11. SALBUTAMOL [Concomitant]
     Indication: DRUG USE FOR UNKNOWN INDICATION
     Route: 055
  12. IPRATROPIUM BROMIDE [Concomitant]
     Indication: DRUG USE FOR UNKNOWN INDICATION
     Route: 055
  13. COLLISTIN [Concomitant]
     Indication: DRUG USE FOR UNKNOWN INDICATION
     Route: 055
  14. RIFABUTIN [Concomitant]
     Indication: MYCOBACTERIUM ABSCESSUS INFECTION
     Dates: start: 20060401
  15. ETHAMBUTOL HYDROCHLORIDE [Concomitant]
     Indication: MYCOBACTERIUM ABSCESSUS INFECTION
     Dates: start: 20060401

REACTIONS (12)
  - AGRANULOCYTOSIS [None]
  - BRONCHOPULMONARY ASPERGILLOSIS [None]
  - C-REACTIVE PROTEIN INCREASED [None]
  - CYANOSIS [None]
  - GENERAL PHYSICAL HEALTH DETERIORATION [None]
  - HEPATITIS [None]
  - MALNUTRITION [None]
  - PANCREATITIS [None]
  - PANCYTOPENIA [None]
  - PNEUMONIA [None]
  - RASH [None]
  - SEPSIS [None]
